FAERS Safety Report 24239341 (Version 1)
Quarter: 2024Q3

REPORT INFORMATION
  Report Type: Report from Study
  Country: US (occurrence: None)
  Receive Date: 20240822
  Receipt Date: 20240822
  Transmission Date: 20241017
  Serious: Yes (Other)
  Sender: ASTRAZENECA
  Company Number: 2024A186274

PATIENT
  Age: 40 Year
  Sex: Female
  Weight: 48.5 kg

DRUGS (1)
  1. KOSELUGO [Suspect]
     Active Substance: SELUMETINIB
     Route: 048

REACTIONS (3)
  - Hydrocephalus [Recovering/Resolving]
  - Nail discolouration [Recovering/Resolving]
  - Contusion [Recovering/Resolving]
